FAERS Safety Report 11315830 (Version 3)
Quarter: 2015Q3

REPORT INFORMATION
  Report Type: Spontaneous
  Country: US (occurrence: None)
  Receive Date: 20150724
  Receipt Date: 20150813
  Transmission Date: 20151125
  Serious: Yes (Death, Other)
  Sender: FDA-Public Use
  Company Number: KAD201507-002249

PATIENT
  Age: 57 Year
  Sex: Male

DRUGS (7)
  1. PRILOSEC (OMEPRAZOLE) [Concomitant]
     Active Substance: OMEPRAZOLE MAGNESIUM
  2. SYMBICORT (BUDESONIDE, FORMOTEROL FUAMRATE) [Concomitant]
  3. DOLOPHINE [Concomitant]
     Active Substance: METHADONE HYDROCHLORIDE
  4. NORVASC [Concomitant]
     Active Substance: AMLODIPINE BESYLATE
  5. AMBIEN [Concomitant]
     Active Substance: ZOLPIDEM TARTRATE
  6. RIBAVIRIN. [Suspect]
     Active Substance: RIBAVIRIN
     Indication: HEPATITIS C
     Route: 048
     Dates: start: 20150629, end: 201507
  7. VIEKIRA PAK [Suspect]
     Active Substance: DASABUVIR\OMBITASVIR\PARITAPREVIR\RITONAVIR
     Indication: HEPATITIS C
     Route: 048
     Dates: start: 20150629, end: 20150707

REACTIONS (7)
  - Splenomegaly [None]
  - Renal failure [None]
  - Hepatic failure [None]
  - Multi-organ failure [None]
  - Respiratory failure [None]
  - Hepatic steatosis [None]
  - Unresponsive to stimuli [None]

NARRATIVE: CASE EVENT DATE: 201507
